FAERS Safety Report 5733571-3 (Version None)
Quarter: 2008Q2

REPORT INFORMATION
  Report Type: 
  Country: None (occurrence: None)
  Receive Date: 20080509
  Receipt Date: 20080428
  Transmission Date: 20081010
  Serious: Yes (Hospitalization)
  Sender: FDA-Public Use
  Company Number: JP-JNJFOC-20080406897

PATIENT
  Age: 53 Year
  Sex: Male

DRUGS (2)
  1. LEVOFLOXACIN [Suspect]
     Indication: PROSTATITIS
     Route: 048
  2. MEFENAMIC ACID [Concomitant]
     Indication: PROSTATITIS
     Route: 048

REACTIONS (2)
  - ILEUS PARALYTIC [None]
  - RASH ERYTHEMATOUS [None]
